FAERS Safety Report 5612294-5 (Version None)
Quarter: 2008Q1

REPORT INFORMATION
  Report Type: 
  Country: None (occurrence: None)
  Receive Date: 20080130
  Receipt Date: 20080118
  Transmission Date: 20080703
  Serious: Yes (Other)
  Sender: FDA-Public Use
  Company Number: 2008001866

PATIENT
  Age: 24 Month
  Sex: Female

DRUGS (1)
  1. DEXTROMETHORPHAN HYDROBROMIDE [Suspect]
     Indication: ACCIDENTAL EXPOSURE
     Dosage: UNSPECIFIED; ORAL
     Route: 048

REACTIONS (11)
  - ACCIDENTAL EXPOSURE [None]
  - ACCIDENTAL OVERDOSE [None]
  - ATAXIA [None]
  - CONVULSION [None]
  - DEPRESSED LEVEL OF CONSCIOUSNESS [None]
  - DRUG SCREEN FALSE POSITIVE [None]
  - DYSKINESIA [None]
  - HYPERREFLEXIA [None]
  - MUSCLE RIGIDITY [None]
  - MYDRIASIS [None]
  - PUPIL FIXED [None]
